FAERS Safety Report 5027502-1 (Version None)
Quarter: 2006Q2

REPORT INFORMATION
  Report Type: 
  Country: None (occurrence: None)
  Receive Date: 20060501
  Receipt Date: 20060208
  Transmission Date: 20061013
  Serious: Yes (Hospitalization)
  Sender: FDA-Public Use
  Company Number: 200611390US

PATIENT
  Age: 46 Year

DRUGS (1)
  1. KETEK [Suspect]
     Dosage: PO
     Route: 048
     Dates: start: 20051226, end: 20051230

REACTIONS (1)
  - JAUNDICE CHOLESTATIC [None]
